FAERS Safety Report 6010156-5 (Version None)
Quarter: 2008Q4

REPORT INFORMATION
  Report Type: 
  Country: None (occurrence: None)
  Receive Date: 20081216
  Receipt Date: 20081127
  Transmission Date: 20090506
  Serious: Yes (Disabling)
  Sender: FDA-Public Use
  Company Number: US025105

PATIENT
  Age: 27 Year
  Sex: Female
  Weight: 49 kg

DRUGS (12)
  1. ACTIQ [Suspect]
     Dosage: 200 UG AT REQUEST TID BUCCAL
     Route: 002
     Dates: start: 20070801
  2. DURAGESIC-100 [Suspect]
     Dosage: 25 UG ONE PATCH ALL THREE DAYS TRANSDERMAL
     Route: 062
     Dates: start: 20070801
  3. PROGRAF [Concomitant]
  4. IMUREL [Concomitant]
  5. CORTANCYL [Concomitant]
  6. URSOLVAN [Concomitant]
  7. NEXIUM [Concomitant]
  8. BACTRIM [Concomitant]
  9. TOCO [Concomitant]
  10. A 313 [Concomitant]
  11. IDEOS [Concomitant]
  12. CREON [Concomitant]

REACTIONS (6)
  - ASTHENIA [None]
  - FATIGUE [None]
  - FEELING ABNORMAL [None]
  - GAIT DISTURBANCE [None]
  - SOMNOLENCE [None]
  - TINNITUS [None]
